FAERS Safety Report 17577587 (Version 1)
Quarter: 2020Q1

REPORT INFORMATION
  Report Type: Report from Study
  Country: GR (occurrence: GR)
  Receive Date: 20200324
  Receipt Date: 20200324
  Transmission Date: 20200409
  Serious: Yes (Other)
  Sender: FDA-Public Use
  Company Number: NVSC2020GR081799

PATIENT
  Age: 70 Year
  Sex: Female

DRUGS (1)
  1. BYL719 [Suspect]
     Active Substance: ALPELISIB
     Indication: BREAST CANCER METASTATIC
     Dosage: 300 MG, QD
     Route: 048
     Dates: start: 20200309, end: 20200310

REACTIONS (1)
  - Hyperglycaemic hyperosmolar nonketotic syndrome [Not Recovered/Not Resolved]

NARRATIVE: CASE EVENT DATE: 20200310
